FAERS Safety Report 6127764-3 (Version None)
Quarter: 2009Q1

REPORT INFORMATION
  Report Type: 
  Country: None (occurrence: None)
  Receive Date: 20090323
  Receipt Date: 20090316
  Transmission Date: 20090719
  Serious: Yes (Hospitalization, Other)
  Sender: FDA-Public Use
  Company Number: US-BAYER-200910781BCC

PATIENT

DRUGS (3)
  1. ASPIRIN [Suspect]
     Indication: MYOCARDIAL INFARCTION
  2. PLAVIX [Suspect]
     Indication: MYOCARDIAL INFARCTION
  3. PLAVIX [Suspect]

REACTIONS (2)
  - HAEMORRHAGE [None]
  - REOCCLUSION [None]
